FAERS Safety Report 18473356 (Version 1)
Quarter: 2020Q4

REPORT INFORMATION
  Report Type: Spontaneous
  Country: DE (occurrence: DE)
  Receive Date: 20201106
  Receipt Date: 20201106
  Transmission Date: 20210114
  Serious: Yes (Life-Threatening, Hospitalization, Other)
  Sender: FDA-Public Use
  Company Number: DE-GP-PHARM S.A.-2093663

PATIENT
  Age: 80 Year
  Sex: Male

DRUGS (19)
  1. LUTRATE DEPOT [Suspect]
     Active Substance: LEUPROLIDE ACETATE
     Route: 065
  2. RESTEX 100 MG / 25 MG?(ACTIVE SUBSTANCES: BENSERAZIDE HYDROCHLORIDE AN [Concomitant]
  3. OMEPRAZOLE. [Concomitant]
     Active Substance: OMEPRAZOLE
  4. APIXABAN [Concomitant]
     Active Substance: APIXABAN
  5. ATORVASTATIN [Concomitant]
     Active Substance: ATORVASTATIN
  6. XTANDI [Suspect]
     Active Substance: ENZALUTAMIDE
  7. ZOPLICONE [Concomitant]
     Active Substance: ZOPICLONE
  8. EPLERENONE. [Suspect]
     Active Substance: EPLERENONE
  9. LEVOTHYROXINE SODIUM. [Concomitant]
     Active Substance: LEVOTHYROXINE SODIUM
  10. METFORMIN [Concomitant]
     Active Substance: METFORMIN HYDROCHLORIDE
  11. ENTRESTO [Suspect]
     Active Substance: SACUBITRIL\VALSARTAN
  12. METOPROLOL. [Suspect]
     Active Substance: METOPROLOL
  13. ALLOPURINOL. [Concomitant]
     Active Substance: ALLOPURINOL
  14. FENTANYL. [Suspect]
     Active Substance: FENTANYL
     Route: 060
  15. SALBUTAMOL [Concomitant]
     Active Substance: ALBUTEROL
  16. METAMIZOLE [Concomitant]
     Active Substance: METAMIZOLE
  17. NITROLINGUAL AKUT SPRAY (ACTIVE SUBSTANCE: GLYCERYL TRINITRATE) [Concomitant]
  18. FUROSEMIDE. [Suspect]
     Active Substance: FUROSEMIDE
  19. ENTRESTO [Suspect]
     Active Substance: SACUBITRIL\VALSARTAN

REACTIONS (10)
  - Nausea [Recovering/Resolving]
  - General physical health deterioration [Recovering/Resolving]
  - Hypotension [Recovering/Resolving]
  - Condition aggravated [Recovering/Resolving]
  - Adrenocortical insufficiency acute [Unknown]
  - Disorientation [Recovering/Resolving]
  - Depressed level of consciousness [Recovering/Resolving]
  - Fatigue [Recovering/Resolving]
  - Electrocardiogram QT prolonged [Unknown]
  - Acute kidney injury [Unknown]

NARRATIVE: CASE EVENT DATE: 20200721
